FAERS Safety Report 7596580-8 (Version None)
Quarter: 2011Q3

REPORT INFORMATION
  Report Type: 
  Country: None (occurrence: None)
  Receive Date: 20110708
  Receipt Date: 20110628
  Transmission Date: 20111222
  Serious: Yes (Death, Hospitalization)
  Sender: FDA-Public Use
  Company Number: US-CELGENEUS-163-21880-11063808

PATIENT
  Age: 90 Year
  Sex: Male
  Weight: 78.088 kg

DRUGS (10)
  1. MELPHALAN HYDROCHLORIDE [Suspect]
     Indication: MULTIPLE MYELOMA
     Dosage: 10 MILLIGRAM
     Route: 048
     Dates: start: 20110416, end: 20110419
  2. SYNTHROID [Concomitant]
     Dosage: 25 MICROGRAM
     Route: 048
  3. HYDRODIURIL [Concomitant]
     Dosage: 12.5 MILLIGRAM
     Route: 048
  4. LEVAQUIN [Concomitant]
     Dosage: 250 MILLIGRAM
     Route: 048
  5. REVLIMID [Suspect]
     Indication: MULTIPLE MYELOMA
     Dosage: 10 MILLIGRAM
     Route: 048
     Dates: start: 20110416, end: 20110506
  6. OMEPRAZOLE [Concomitant]
     Dosage: 20 MILLIGRAM
     Route: 048
  7. LIPITOR [Concomitant]
     Dosage: 10 MILLIGRAM
     Route: 048
  8. MYCOSTATIN [Concomitant]
     Dosage: 5 MILLILITER
     Route: 048
  9. PREDNISONE [Suspect]
     Indication: MULTIPLE MYELOMA
     Dosage: 50 MILLIGRAM
     Route: 048
     Dates: start: 20110416, end: 20110419
  10. ATACAND [Concomitant]
     Dosage: 8 MILLIGRAM
     Route: 048

REACTIONS (14)
  - GENERAL PHYSICAL HEALTH DETERIORATION [None]
  - PYREXIA [None]
  - ANAEMIA [None]
  - LEUKOPENIA [None]
  - THROMBOCYTOPENIA [None]
  - MULTIPLE MYELOMA [None]
  - BLOOD CREATININE INCREASED [None]
  - BLOOD LACTIC ACID [None]
  - DEATH [None]
  - BLOOD UREA INCREASED [None]
  - DYSURIA [None]
  - ADVERSE EVENT [None]
  - HYPONATRAEMIA [None]
  - CONFUSIONAL STATE [None]
